FAERS Safety Report 4766833-7 (Version None)
Quarter: 2005Q3

REPORT INFORMATION
  Report Type: 
  Country: None (occurrence: None)
  Receive Date: 20050912
  Receipt Date: 20050830
  Transmission Date: 20060218
  Serious: Yes (Other)
  Sender: FDA-Public Use
  Company Number: 2005122745

PATIENT
  Sex: Male
  Weight: 74.8435 kg

DRUGS (2)
  1. NEURONTIN [Suspect]
     Indication: PAIN
     Dosage: 800 MG (1 IN 1 D)
     Dates: start: 20030801, end: 20030101
  2. VICODIN [Suspect]
     Indication: ILL-DEFINED DISORDER
     Dates: start: 20030801

REACTIONS (3)
  - HALLUCINATIONS, MIXED [None]
  - LOSS OF CONSCIOUSNESS [None]
  - PSYCHOTIC DISORDER [None]
